FAERS Safety Report 22195817 (Version 1)
Quarter: 2023Q2

REPORT INFORMATION
  Report Type: Spontaneous
  Country: US (occurrence: US)
  Receive Date: 20230411
  Receipt Date: 20230411
  Transmission Date: 20230722
  Serious: Yes (Other)
  Sender: FDA-Public Use
  Company Number: US-EyePoint Pharmaceuticals, Inc.-US-EYP-23-00114

PATIENT
  Age: 59 Year
  Sex: Female

DRUGS (21)
  1. DEXYCU [Suspect]
     Active Substance: DEXAMETHASONE
     Indication: Cataract operation
     Dosage: IN THE LEFT EYE/OS POSTERIOR TO THE IRIS
     Route: 031
  2. DEXYCU [Suspect]
     Active Substance: DEXAMETHASONE
  3. LATANOPROST [Concomitant]
     Active Substance: LATANOPROST
     Indication: Open angle glaucoma
     Route: 031
  4. MIOCHOL E [Concomitant]
     Active Substance: ACETYLCHOLINE CHLORIDE
     Indication: Miosis
     Dosage: RIGHT EYE/OD
     Route: 031
  5. BSS PLUS + EPINEPHRINE [Concomitant]
     Indication: Eye irrigation
     Dosage: RIGHT EYE/OD
     Route: 031
  6. BSS PLUS + EPINEPHRINE [Concomitant]
     Indication: Eye irrigation
     Dosage: RIGHT EYE/OD
     Route: 031
  7. BSS PLUS + PHENYLEPHRINE/KETOROLAC [Concomitant]
     Indication: Eye irrigation
     Dosage: LEFT EYE/OS
     Route: 031
  8. BSS PLUS + PHENYLEPHRINE/KETOROLAC [Concomitant]
     Indication: Eye irrigation
     Dosage: LEFT EYE/OS
     Route: 031
  9. BSS PLUS + PHENYLEPHRINE/KETOROLAC [Concomitant]
     Indication: Eye irrigation
     Dosage: LEFT EYE/OS
     Route: 031
  10. LIDOCAINE + EPINEPHRINE [Concomitant]
     Indication: Pupil dilation procedure
     Dosage: BOTH EYES/OU
     Route: 031
  11. LIDOCAINE + EPINEPHRINE [Concomitant]
     Indication: Pain prophylaxis
  12. VIGAMOX [Concomitant]
     Active Substance: MOXIFLOXACIN HYDROCHLORIDE
     Indication: Infection prophylaxis
     Dosage: RIGHT EYE/OD
     Route: 031
  13. POLYDEX [Concomitant]
     Indication: Infection prophylaxis
     Dosage: RIGHT EYE/OD
     Route: 031
  14. POLYTRIM [Concomitant]
     Active Substance: POLYMYXIN B SULFATE\TRIMETHOPRIM SULFATE
     Indication: Infection prophylaxis
     Dosage: LEFT EYE/OS; 2X DROPS
     Route: 031
  15. CHONDROITIN SULFATE SODIUM NOS\HYALURONATE SODIUM [Suspect]
     Active Substance: CHONDROITIN SULFATE SODIUM NOS\HYALURONATE SODIUM
     Indication: Cataract operation
     Dosage: BOTH EYES/OU
     Route: 047
  16. HYALURONATE SODIUM [Suspect]
     Active Substance: HYALURONATE SODIUM
     Indication: Cataract operation
     Dosage: RIGHT EYE/OD
     Route: 047
  17. HYALURONATE SODIUM [Suspect]
     Active Substance: HYALURONATE SODIUM
     Indication: Cataract operation
     Dosage: LEFT EYE/OS
     Route: 047
  18. BETADINE [Concomitant]
     Active Substance: POVIDONE-IODINE
     Indication: Infection prophylaxis
     Dosage: BOTH EYES/OU
     Route: 031
  19. ALPHAGAN P [Concomitant]
     Active Substance: BRIMONIDINE TARTRATE
     Indication: Intraocular pressure increased
     Dosage: BOTH EYES/OU
     Route: 031
  20. PREDNISOLONE [Concomitant]
     Active Substance: PREDNISOLONE
     Indication: Product used for unknown indication
     Route: 065
  21. KETOROLAC [Concomitant]
     Active Substance: KETOROLAC TROMETHAMINE
     Indication: Product used for unknown indication
     Dosage: LEFT EYE/OS
     Route: 065

REACTIONS (4)
  - Iris atrophy [Unknown]
  - Corectopia [Unknown]
  - Device dislocation [Unknown]
  - Product residue present [Unknown]
